FAERS Safety Report 17846137 (Version 1)
Quarter: 2020Q2

REPORT INFORMATION
  Report Type: Spontaneous
  Country: US (occurrence: US)
  Receive Date: 20200601
  Receipt Date: 20200601
  Transmission Date: 20200714
  Serious: Yes (Life-Threatening, Hospitalization)
  Sender: FDA-Public Use
  Company Number: None

PATIENT
  Age: 71 Year
  Sex: Male
  Weight: 83 kg

DRUGS (1)
  1. RIVAROXABAN (RIVAROXABAN 20MG TAB, UD) [Suspect]
     Active Substance: RIVAROXABAN
     Indication: ATRIAL FIBRILLATION
     Route: 048
     Dates: start: 20191228, end: 20200520

REACTIONS (1)
  - Haemorrhage [None]

NARRATIVE: CASE EVENT DATE: 20200520
